FAERS Safety Report 21800634 (Version 1)
Quarter: 2022Q4

REPORT INFORMATION
  Report Type: Spontaneous
  Country: US (occurrence: US)
  Receive Date: 20221230
  Receipt Date: 20221230
  Transmission Date: 20230113
  Serious: No
  Sender: FDA-Public Use
  Company Number: US-009507513-2212USA008052

PATIENT
  Age: 47 Year
  Sex: Female

DRUGS (3)
  1. WELIREG [Suspect]
     Active Substance: BELZUTIFAN
     Indication: Pancreatic neuroendocrine tumour metastatic
     Dosage: 120 MILLIGRAM
     Route: 048
     Dates: start: 202110
  2. SUNITINIB [Concomitant]
     Active Substance: SUNITINIB
     Indication: Pancreatic neuroendocrine tumour metastatic
     Dosage: UNK
     Dates: start: 202003
  3. SUNITINIB [Concomitant]
     Active Substance: SUNITINIB
     Dosage: UNK

REACTIONS (3)
  - Anaemia [Not Recovered/Not Resolved]
  - Fatigue [Recovered/Resolved]
  - Headache [Unknown]
